FAERS Safety Report 10893656 (Version 2)
Quarter: 2015Q1

REPORT INFORMATION
  Report Type: Report from Study
  Country: RO (occurrence: RO)
  Receive Date: 20150306
  Receipt Date: 20150313
  Transmission Date: 20150721
  Serious: Yes (Hospitalization, Other)
  Sender: FDA-Public Use
  Company Number: RO-ABBVIE-15P-135-1354179-00

PATIENT
  Age: 61 Year
  Sex: Male

DRUGS (5)
  1. DUODOPA [Suspect]
     Active Substance: CARBIDOPA\LEVODOPA
     Indication: PARKINSON^S DISEASE
     Dosage: MD: 5 ML; CR: 5.6 ML/H; ED: 5ML
     Route: 050
     Dates: start: 20130404
  2. SEROQUEL [Concomitant]
     Active Substance: QUETIAPINE FUMARATE
     Indication: DELUSIONAL DISORDER, UNSPECIFIED TYPE
     Route: 048
  3. CORDARONE [Concomitant]
     Active Substance: AMIODARONE HYDROCHLORIDE
     Indication: ATRIAL FIBRILLATION
     Route: 048
  4. MADOPAR HBS [Concomitant]
     Active Substance: BENSERAZIDE HYDROCHLORIDE\LEVODOPA
     Indication: PARKINSON^S DISEASE
     Dosage: AFTER THE PUMP STOPS - IN THE EVENING
     Route: 048
  5. LANTUS [Concomitant]
     Active Substance: INSULIN GLARGINE
     Indication: TYPE 2 DIABETES MELLITUS
     Route: 058

REACTIONS (5)
  - Cataract [Recovering/Resolving]
  - Mitral valve incompetence [Unknown]
  - Diastolic dysfunction [Unknown]
  - Aortic arteriosclerosis [Unknown]
  - Cataract [Unknown]

NARRATIVE: CASE EVENT DATE: 201501
